FAERS Safety Report 20049064 (Version 1)
Quarter: 2021Q4

REPORT INFORMATION
  Report Type: Spontaneous
  Country: US (occurrence: US)
  Receive Date: 20211109
  Receipt Date: 20211109
  Transmission Date: 20220303
  Serious: No
  Sender: FDA-Public Use
  Company Number: US-CURIUM-2021000731

PATIENT
  Age: 26 Year
  Sex: Female

DRUGS (1)
  1. ULTRATAG RBC [Suspect]
     Active Substance: TECHNETIUM TC-99M RED BLOOD CELLS
     Route: 050

REACTIONS (2)
  - Injury associated with device [Recovered/Resolved]
  - Needle issue [Recovered/Resolved]
